FAERS Safety Report 5751105-4 (Version None)
Quarter: 2008Q2

REPORT INFORMATION
  Report Type: 
  Country: None (occurrence: None)
  Receive Date: 20080528
  Receipt Date: 20080513
  Transmission Date: 20081010
  Serious: Yes (Hospitalization)
  Sender: FDA-Public Use
  Company Number: DE-GENENTECH-248985

PATIENT
  Sex: Female
  Weight: 52 kg

DRUGS (3)
  1. BEVACIZUMAB [Suspect]
     Indication: OVARIAN CANCER
     Dosage: 390 MG, Q3W
     Route: 042
     Dates: start: 20070724
  2. CARBOPLATIN [Suspect]
     Indication: OVARIAN CANCER
     Dosage: 540.85 MG, Q3W
     Route: 042
     Dates: start: 20070724
  3. PACLITAXEL [Suspect]
     Indication: OVARIAN CANCER
     Dosage: 175 MG/M2, Q3W
     Route: 042
     Dates: start: 20070724

REACTIONS (1)
  - SUPRAVENTRICULAR TACHYCARDIA [None]
